FAERS Safety Report 14661386 (Version 6)
Quarter: 2019Q1

REPORT INFORMATION
  Report Type: Spontaneous
  Country: JP (occurrence: JP)
  Receive Date: 20180320
  Receipt Date: 20190114
  Transmission Date: 20190417
  Serious: Yes (Other)
  Sender: FDA-Public Use
  Company Number: JP-BRISTOL-MYERS SQUIBB COMPANY-BMS-2018-023105

PATIENT
  Age: 74 Year
  Sex: Male

DRUGS (3)
  1. XYLOCAINE [Concomitant]
     Active Substance: LIDOCAINE HYDROCHLORIDE
     Indication: FIBROSIS
     Dosage: UNK
     Route: 065
  2. CORTRIL [Concomitant]
     Active Substance: HYDROCORTISONE
     Indication: PRODUCT USED FOR UNKNOWN INDICATION
     Dosage: 10 MG, QD
     Route: 048
  3. KENACORT-A [Suspect]
     Active Substance: TRIAMCINOLONE
     Indication: FIBROSIS
     Dosage: 10 MG, QWK
     Route: 023
     Dates: start: 20180216, end: 20180309

REACTIONS (20)
  - Finger deformity [Unknown]
  - Off label use [Unknown]
  - Hypothalamo-pituitary disorder [Unknown]
  - Feeling cold [Unknown]
  - Blood pressure increased [Unknown]
  - Paralysis [Unknown]
  - Musculoskeletal stiffness [Unknown]
  - Pain [Recovering/Resolving]
  - Hot flush [Unknown]
  - Pruritus [Recovered/Resolved]
  - Back pain [Recovering/Resolving]
  - Chest pain [Unknown]
  - Arthralgia [Not Recovered/Not Resolved]
  - Eye pain [Recovering/Resolving]
  - Musculoskeletal discomfort [Unknown]
  - Physical deconditioning [Recovered/Resolved]
  - Myalgia [Recovered/Resolved]
  - Cataract [Unknown]
  - Pollakiuria [Unknown]
  - Limb mass [Unknown]

NARRATIVE: CASE EVENT DATE: 20180223
